FAERS Safety Report 9344761 (Version 3)
Quarter: 2014Q1

REPORT INFORMATION
  Report Type: Report from Study
  Country: TH (occurrence: TH)
  Receive Date: 20130612
  Receipt Date: 20140108
  Transmission Date: 20141002
  Serious: Yes (Hospitalization)
  Sender: FDA-Public Use
  Company Number: TH-009507513-1305THA001011

PATIENT
  Age: 70 Year
  Sex: Male
  Weight: 62.7 kg

DRUGS (16)
  1. BLINDED VARICELLA-ZOSTER VIRUS VACCINE INACTIVATED (OKA/MERCK) [Suspect]
     Indication: PROPHYLAXIS
     Route: 058
     Dates: start: 20121218, end: 20121218
  2. BLINDED VARICELLA-ZOSTER VIRUS VACCINE INACTIVATED (OKA/MERCK) [Suspect]
     Route: 058
     Dates: start: 20130122, end: 20130122
  3. BLINDED VARICELLA-ZOSTER VIRUS VACCINE INACTIVATED (OKA/MERCK) [Suspect]
     Route: 058
     Dates: start: 20130226, end: 20130226
  4. BLINDED VARICELLA-ZOSTER VIRUS VACCINE INACTIVATED (OKA/MERCK) [Suspect]
     Route: 058
     Dates: start: 20130326, end: 20130326
  5. DEXAMETHASONE [Suspect]
     Indication: CHEMOTHERAPY
     Dosage: 10 MG, QID
     Route: 048
     Dates: start: 20130403, end: 20130406
  6. ENDOXAN [Suspect]
     Indication: CHEMOTHERAPY
     Dosage: 250 MG, BID
     Route: 048
     Dates: start: 20130326, end: 20130329
  7. ANISE OIL (+) ANTIMONY POTASSIUM TARTRATE (+) BENZOIC ACID (+) CAMPHOR [Concomitant]
     Indication: PROPHYLAXIS
     Dosage: UNK, PRN
     Route: 048
     Dates: start: 20120925
  8. SULFAMETHOXAZOLE (+) TRIMETHOPRIM [Concomitant]
     Indication: CHEMOTHERAPY
     Dosage: TOTAL DAILY DOSE 1 TABLET, QOD
     Route: 048
     Dates: start: 20130227
  9. LOSARTAN POTASSIUM [Concomitant]
     Indication: HYPERTENSION
     Dosage: 50 MG, QD
     Route: 048
     Dates: start: 200705
  10. AMLODIPINE [Concomitant]
     Indication: HYPERTENSION
     Dosage: 5 MG, QD
     Route: 048
     Dates: start: 200705
  11. SIMVASTATIN [Concomitant]
     Indication: DYSLIPIDAEMIA
     Dosage: 10 MG, QD
     Route: 048
     Dates: start: 200705
  12. ASPIRIN [Concomitant]
     Dosage: 81 MG, QD
     Route: 048
     Dates: start: 200705
  13. FOLIC ACID [Concomitant]
     Indication: PROPHYLACTIC CHEMOTHERAPY
     Dosage: 5 MG, QD
     Route: 048
     Dates: start: 20130129
  14. CYANOCOBALAMIN (+) PYRIDOXINE (+) THIAMINE [Concomitant]
     Dosage: UNK, TID
     Route: 048
     Dates: start: 20121127
  15. OMEPRAZOLE [Concomitant]
     Indication: PROPHYLAXIS
     Dosage: 20 MG, BID
     Route: 048
     Dates: start: 20130326, end: 20130424
  16. DEXAMETHASONE [Concomitant]
     Indication: CHEMOTHERAPY
     Dosage: 10 MG, QID
     Route: 048
     Dates: start: 20130326, end: 20130329

REACTIONS (2)
  - Hyponatraemia [Recovered/Resolved]
  - Hypokalaemia [Recovered/Resolved]
